FAERS Safety Report 15905229 (Version 1)
Quarter: 2019Q1

REPORT INFORMATION
  Report Type: Spontaneous
  Country: ES (occurrence: ES)
  Receive Date: 20190204
  Receipt Date: 20190204
  Transmission Date: 20190417
  Serious: Yes (Other)
  Sender: FDA-Public Use
  Company Number: ES-BAYER-200611199GDS

PATIENT
  Age: 70 Year
  Sex: Male

DRUGS (2)
  1. PROFLOX (MOXIFLOXACIN HYDROCHLORIDE) [Suspect]
     Active Substance: MOXIFLOXACIN HYDROCHLORIDE
     Indication: ASTHMA
     Dosage: 400 MG, UNK
     Route: 048
     Dates: start: 20060130, end: 20060130
  2. OCTEGRA [Suspect]
     Active Substance: MOXIFLOXACIN
     Indication: ASTHMA
     Route: 048
     Dates: start: 20060130, end: 20060130

REACTIONS (6)
  - Hypotension [Unknown]
  - Stridor [Unknown]
  - Angioedema [Unknown]
  - Rash erythematous [Unknown]
  - Anaphylactic reaction [Unknown]
  - Erythema [Unknown]

NARRATIVE: CASE EVENT DATE: 20060130
